FAERS Safety Report 10249695 (Version 8)
Quarter: 2018Q3

REPORT INFORMATION
  Report Type: Spontaneous
  Country: FR (occurrence: FR)
  Receive Date: 20140620
  Receipt Date: 20180926
  Transmission Date: 20181010
  Serious: Yes (Other)
  Sender: FDA-Public Use
  Company Number: FR-JNJFOC-20140611864

PATIENT
  Age: 17 Year
  Sex: Female

DRUGS (37)
  1. IBUPROFEN. [Suspect]
     Active Substance: IBUPROFEN
     Indication: PAIN
     Dosage: 4 TO 5 TIMES A DAY
     Route: 065
     Dates: start: 201306
  2. IBUPROFEN. [Suspect]
     Active Substance: IBUPROFEN
     Indication: ARTHRALGIA
     Route: 065
  3. IBUPROFEN. [Suspect]
     Active Substance: IBUPROFEN
     Indication: CHONDROPATHY
     Dosage: GRADUALLY STARTED REDUCING THE DOSES, UNTIL SHE STOPPED TAKING IT COMPLETLY
     Route: 065
  4. IBUPROFEN. [Suspect]
     Active Substance: IBUPROFEN
     Indication: CHONDROPATHY
     Dosage: 400 MG, PRN, 4 ? 5 TIMES A DAY
     Route: 065
     Dates: start: 201304
  5. IBUPROFEN. [Suspect]
     Active Substance: IBUPROFEN
     Indication: CHONDROPATHY
     Route: 065
     Dates: start: 201304
  6. IBUPROFEN. [Suspect]
     Active Substance: IBUPROFEN
     Indication: PAIN
     Route: 065
     Dates: start: 201304
  7. IBUPROFEN. [Suspect]
     Active Substance: IBUPROFEN
     Indication: CHONDROPATHY
     Dosage: GRADUALLY STARTED REDUCING THE DOSES, UNTIL SHE STOPPED TAKING IT COMPLETLY
     Route: 065
  8. IBUPROFEN. [Suspect]
     Active Substance: IBUPROFEN
     Indication: ARTHRALGIA
     Dosage: GRADUALLY STARTED REDUCING THE DOSES, UNTIL SHE STOPPED TAKING IT COMPLETLY
     Route: 065
  9. IBUPROFEN. [Suspect]
     Active Substance: IBUPROFEN
     Indication: CHONDROPATHY
     Route: 065
  10. IBUPROFEN. [Suspect]
     Active Substance: IBUPROFEN
     Indication: PAIN
     Dosage: GRADUALLY STARTED REDUCING THE DOSES, UNTIL SHE STOPPED TAKING IT COMPLETLY
     Route: 065
  11. IBUPROFEN. [Suspect]
     Active Substance: IBUPROFEN
     Indication: CHONDROPATHY
     Dosage: 4 TO 5 TIMES A DAY
     Route: 065
     Dates: start: 201306
  12. IBUPROFEN. [Suspect]
     Active Substance: IBUPROFEN
     Indication: ARTHRALGIA
     Dosage: 400 MG, PRN, 4 ? 5 TIMES A DAY
     Route: 065
     Dates: start: 201304
  13. IBUPROFEN. [Suspect]
     Active Substance: IBUPROFEN
     Indication: CHONDROPATHY
     Dosage: 400 MG, QID
     Route: 065
     Dates: start: 201302
  14. IBUPROFEN. [Suspect]
     Active Substance: IBUPROFEN
     Indication: PAIN
     Dosage: 400 MG, QID
     Route: 065
     Dates: start: 201302
  15. IBUPROFEN. [Suspect]
     Active Substance: IBUPROFEN
     Indication: CHONDROPATHY
     Dosage: 4 TO 5 TIMES A DAY
     Route: 065
     Dates: start: 201306
  16. IBUPROFEN. [Suspect]
     Active Substance: IBUPROFEN
     Indication: PAIN
     Route: 065
  17. IBUPROFEN. [Suspect]
     Active Substance: IBUPROFEN
     Indication: PAIN
     Dosage: 400 MG, PRN, 4 ? 5 TIMES A DAY
     Route: 065
     Dates: start: 201304
  18. IBUPROFEN. [Suspect]
     Active Substance: IBUPROFEN
     Indication: ARTHRALGIA
     Route: 065
  19. IBUPROFEN. [Suspect]
     Active Substance: IBUPROFEN
     Indication: PAIN
     Dosage: 400 MG, PRN, 4 ? 5 TIMES A DAY
     Route: 065
     Dates: start: 201304
  20. IBUPROFEN. [Suspect]
     Active Substance: IBUPROFEN
     Indication: CHONDROPATHY
     Dosage: 400 MG, PRN, 4 ? 5 TIMES A DAY
     Route: 065
     Dates: start: 201304
  21. IBUPROFEN. [Suspect]
     Active Substance: IBUPROFEN
     Indication: ARTHRALGIA
     Dosage: GRADUALLY STARTED REDUCING THE DOSES, UNTIL SHE STOPPED TAKING IT COMPLETLY
     Route: 065
  22. IBUPROFEN. [Suspect]
     Active Substance: IBUPROFEN
     Indication: ARTHRALGIA
     Dosage: 400 MG, QID
     Route: 065
     Dates: start: 201302
  23. MIRTAZAPINE. [Concomitant]
     Active Substance: MIRTAZAPINE
     Indication: MAJOR DEPRESSION
     Route: 065
     Dates: start: 201303
  24. IBUPROFEN. [Suspect]
     Active Substance: IBUPROFEN
     Indication: CHONDROPATHY
     Dosage: 400 MG, QID
     Route: 065
     Dates: start: 201302
  25. IBUPROFEN. [Suspect]
     Active Substance: IBUPROFEN
     Indication: PAIN
     Dosage: 4 TO 5 TIMES A DAY
     Route: 065
     Dates: start: 201306
  26. IBUPROFEN. [Suspect]
     Active Substance: IBUPROFEN
     Indication: PAIN
     Route: 065
  27. IBUPROFEN. [Suspect]
     Active Substance: IBUPROFEN
     Indication: ARTHRALGIA
     Route: 065
     Dates: start: 201304
  28. IBUPROFEN. [Suspect]
     Active Substance: IBUPROFEN
     Indication: PAIN
     Route: 065
     Dates: start: 201304
  29. IBUPROFEN. [Suspect]
     Active Substance: IBUPROFEN
     Indication: ARTHRALGIA
     Dosage: 400 MG, PRN, 4 ? 5 TIMES A DAY
     Route: 065
     Dates: start: 201304
  30. IBUPROFEN. [Suspect]
     Active Substance: IBUPROFEN
     Indication: ARTHRALGIA
     Dosage: 400 MG, QID
     Route: 065
     Dates: start: 201302
  31. IBUPROFEN. [Suspect]
     Active Substance: IBUPROFEN
     Indication: PAIN
     Dosage: 400 MG, QID
     Route: 065
     Dates: start: 201302
  32. IBUPROFEN. [Suspect]
     Active Substance: IBUPROFEN
     Indication: ARTHRALGIA
     Dosage: 4 TO 5 TIMES A DAY
     Route: 065
     Dates: start: 201306
  33. IBUPROFEN. [Suspect]
     Active Substance: IBUPROFEN
     Indication: CHONDROPATHY
     Route: 065
  34. IBUPROFEN. [Suspect]
     Active Substance: IBUPROFEN
     Indication: CHONDROPATHY
     Route: 065
     Dates: start: 201304
  35. IBUPROFEN. [Suspect]
     Active Substance: IBUPROFEN
     Indication: ARTHRALGIA
     Route: 065
     Dates: start: 201304
  36. IBUPROFEN. [Suspect]
     Active Substance: IBUPROFEN
     Indication: PAIN
     Dosage: GRADUALLY STARTED REDUCING THE DOSES, UNTIL SHE STOPPED TAKING IT COMPLETLY
     Route: 065
  37. IBUPROFEN. [Suspect]
     Active Substance: IBUPROFEN
     Indication: ARTHRALGIA
     Dosage: 4 TO 5 TIMES A DAY
     Route: 065
     Dates: start: 201306

REACTIONS (6)
  - Drug withdrawal headache [Unknown]
  - Drug dependence [Unknown]
  - Drug abuse [Unknown]
  - Overdose [Unknown]
  - Drug withdrawal syndrome [Recovered/Resolved]
  - Cluster headache [Unknown]

NARRATIVE: CASE EVENT DATE: 2013
